FAERS Safety Report 10452902 (Version 1)
Quarter: 2014Q3

REPORT INFORMATION
  Report Type: Spontaneous
  Country: IT (occurrence: IT)
  Receive Date: 20140915
  Receipt Date: 20140915
  Transmission Date: 20150326
  Serious: Yes (Life-Threatening)
  Sender: FDA-Public Use
  Company Number: IT-ASTRAZENECA-2014SE66812

PATIENT
  Age: 12806 Day
  Sex: Male

DRUGS (2)
  1. ULTIVA [Concomitant]
     Active Substance: REMIFENTANIL HYDROCHLORIDE
     Dosage: 4 ML/HOUR, 5MG BOTTLE
     Route: 042
  2. DIPRIVAN [Suspect]
     Active Substance: PROPOFOL
     Indication: SEDATION
     Route: 041
     Dates: start: 20140830, end: 20140903

REACTIONS (1)
  - Rhabdomyolysis [Recovering/Resolving]

NARRATIVE: CASE EVENT DATE: 20140901
